FAERS Safety Report 20181071 (Version 1)
Quarter: 2021Q4

REPORT INFORMATION
  Report Type: Spontaneous
  Country: US (occurrence: None)
  Receive Date: 20211213
  Receipt Date: 20211213
  Transmission Date: 20220303
  Serious: No
  Sender: FDA-Public Use
  Company Number: None

PATIENT
  Sex: Female

DRUGS (3)
  1. DALFAMPRIDINE [Suspect]
     Active Substance: DALFAMPRIDINE
     Indication: Product used for unknown indication
     Dosage: FREQUENCY : TWICE A DAY;?
     Route: 048
  2. UNSPECIFIED INGREDIENT [Concomitant]
     Active Substance: UNSPECIFIED INGREDIENT
  3. PREDNISONE [Concomitant]
     Active Substance: PREDNISONE

REACTIONS (2)
  - Neuropathy peripheral [None]
  - Burning sensation [None]
